FAERS Safety Report 8694568 (Version 2)
Quarter: 2013Q4

REPORT INFORMATION
  Report Type: Spontaneous
  Country: ES (occurrence: ES)
  Receive Date: 20120731
  Receipt Date: 20131106
  Transmission Date: 20140711
  Serious: Yes (Other)
  Sender: FDA-Public Use
  Company Number: ES-009507513-1207ESP011107

PATIENT
  Age: 71 Year
  Sex: Female
  Weight: 70 kg

DRUGS (5)
  1. ARCOXIA 60 MG FILM-COATED TABLETS [Suspect]
     Route: 065
     Dates: start: 20120508
  2. LEVOTHROID [Interacting]
     Indication: HYPOTHYROIDISM
     Route: 065
     Dates: start: 2011
  3. SIMVASTATIN [Interacting]
     Indication: HYPERCHOLESTEROLAEMIA
     Route: 065
     Dates: start: 2011
  4. ENALAPRIL MALEATE [Interacting]
     Indication: HYPERTENSION
     Route: 065
     Dates: start: 2007
  5. SERTRALINE HYDROCHLORIDE [Interacting]
     Indication: DEPRESSION
     Route: 065
     Dates: start: 1999

REACTIONS (1)
  - Transient global amnesia [Recovered/Resolved]
